FAERS Safety Report 6129334-X (Version None)
Quarter: 2009Q1

REPORT INFORMATION
  Report Type: 
  Country: None (occurrence: None)
  Receive Date: 20090324
  Receipt Date: 20090313
  Transmission Date: 20090719
  Serious: Yes (Other)
  Sender: FDA-Public Use
  Company Number: US-BRISTOL-MYERS SQUIBB COMPANY-14543789

PATIENT

DRUGS (15)
  1. DASATINIB [Suspect]
     Indication: ACUTE LYMPHOCYTIC LEUKAEMIA
     Route: 048
  2. DASATINIB [Suspect]
     Indication: CHRONIC MYELOID LEUKAEMIA
     Route: 048
  3. CYCLOPHOSPHAMIDE [Suspect]
     Indication: ACUTE LYMPHOCYTIC LEUKAEMIA
  4. CYCLOPHOSPHAMIDE [Suspect]
     Indication: CHRONIC MYELOID LEUKAEMIA
  5. VINCRISTINE SULFATE [Suspect]
     Indication: ACUTE LYMPHOCYTIC LEUKAEMIA
  6. VINCRISTINE SULFATE [Suspect]
     Indication: CHRONIC MYELOID LEUKAEMIA
  7. DOXORUBICIN HCL [Suspect]
     Indication: ACUTE LYMPHOCYTIC LEUKAEMIA
  8. DOXORUBICIN HCL [Suspect]
     Indication: CHRONIC MYELOID LEUKAEMIA
  9. DEXAMETHASONE TAB [Suspect]
     Indication: ACUTE LYMPHOCYTIC LEUKAEMIA
  10. DEXAMETHASONE TAB [Suspect]
     Indication: CHRONIC MYELOID LEUKAEMIA
  11. CYTARABINE [Suspect]
  12. METHOTREXATE [Suspect]
     Indication: ACUTE LYMPHOCYTIC LEUKAEMIA
  13. METHOTREXATE [Suspect]
     Indication: CHRONIC MYELOID LEUKAEMIA
  14. PREDNISONE [Suspect]
     Indication: ACUTE LYMPHOCYTIC LEUKAEMIA
  15. PREDNISONE [Suspect]
     Indication: CHRONIC MYELOID LEUKAEMIA

REACTIONS (7)
  - DIARRHOEA [None]
  - GASTROINTESTINAL HAEMORRHAGE [None]
  - HYPOCALCAEMIA [None]
  - HYPOPHOSPHATAEMIA [None]
  - INFECTION [None]
  - RENAL FAILURE ACUTE [None]
  - TRANSAMINASES INCREASED [None]
